FAERS Safety Report 8936443 (Version 1)
Quarter: 2012Q4

REPORT INFORMATION
  Report Type: 
  Country: US (occurrence: US)
  Receive Date: 20121130
  Receipt Date: 20121130
  Transmission Date: 20130627
  Serious: Yes (Other)
  Sender: FDA-Public Use
  Company Number: US-PFIZER INC-2012299116

PATIENT

DRUGS (1)
  1. LIPITOR [Suspect]
     Dosage: 20 mg, daily

REACTIONS (4)
  - Haematopoietic neoplasm [Unknown]
  - Biopsy bone abnormal [Unknown]
  - Fall [Unknown]
  - Muscular weakness [Unknown]
